FAERS Safety Report 21388743 (Version 1)
Quarter: 2022Q3

REPORT INFORMATION
  Report Type: Spontaneous
  Country: DE (occurrence: DE)
  Receive Date: 20220928
  Receipt Date: 20220928
  Transmission Date: 20221027
  Serious: Yes (Hospitalization, Other)
  Sender: FDA-Public Use
  Company Number: DE-ADRED-07948-01

PATIENT
  Age: 39 Year
  Sex: Female
  Weight: 76 kg

DRUGS (7)
  1. CLINDAMYCIN HYDROCHLORIDE [Suspect]
     Active Substance: CLINDAMYCIN HYDROCHLORIDE
     Dosage: 600 MG, TID
     Route: 048
  2. ENOXAPARIN SODIUM [Suspect]
     Active Substance: ENOXAPARIN SODIUM
     Dosage: 80 MG, BID
     Route: 058
  3. OMEPRAZOLE [Concomitant]
     Active Substance: OMEPRAZOLE
     Dosage: 20 MG, QD
     Route: 048
  4. TRAMADOL [Concomitant]
     Active Substance: TRAMADOL
     Dosage: 100 MG, QD
     Route: 048
  5. TRAMADOL [Concomitant]
     Active Substance: TRAMADOL
     Dosage: 50 MG, QD
     Route: 048
  6. CHOLECALCIFEROL [Concomitant]
     Active Substance: CHOLECALCIFEROL
     Dosage: 1000 IU, QD
     Route: 048
  7. METAMIZOLE [Concomitant]
     Active Substance: METAMIZOLE
     Dosage: 500 MG/ML, PRN
     Route: 048

REACTIONS (4)
  - Mucosal haemorrhage [Unknown]
  - Haematochezia [Unknown]
  - Pain [Unknown]
  - Diarrhoea [Unknown]
